FAERS Safety Report 13403710 (Version 1)
Quarter: 2017Q2

REPORT INFORMATION
  Report Type: Report from Study
  Country: BR (occurrence: BR)
  Receive Date: 20170404
  Receipt Date: 20170404
  Transmission Date: 20170830
  Serious: Yes (Other)
  Sender: FDA-Public Use
  Company Number: BR-BRISTOL-MYERS SQUIBB COMPANY-BMS-2016-109059

PATIENT
  Sex: Female

DRUGS (2)
  1. ATENOLOL. [Concomitant]
     Active Substance: ATENOLOL
     Indication: PRODUCT USED FOR UNKNOWN INDICATION
     Dosage: UNK
     Route: 065
  2. ABATACEPT [Suspect]
     Active Substance: ABATACEPT
     Indication: RHEUMATOID ARTHRITIS
     Dosage: 3 VIALS, 250 MG, QMO
     Route: 042
     Dates: start: 20151222, end: 20170120

REACTIONS (7)
  - Tracheitis [Unknown]
  - Dry eye [Unknown]
  - Nasal dryness [Unknown]
  - Bronchial obstruction [Unknown]
  - Asthma [Unknown]
  - Pneumonia [Unknown]
  - Cough [Unknown]
